FAERS Safety Report 4693352-9 (Version None)
Quarter: 2005Q2

REPORT INFORMATION
  Report Type: 
  Country: None (occurrence: None)
  Receive Date: 20050615
  Receipt Date: 20050525
  Transmission Date: 20051028
  Serious: Yes (Hospitalization)
  Sender: FDA-Public Use
  Company Number: US_0505116912

PATIENT
  Age: 12 Year
  Sex: Female
  Weight: 50 kg

DRUGS (2)
  1. STRATTERA [Suspect]
     Indication: ATTENTION DEFICIT/HYPERACTIVITY DISORDER
     Dosage: 40 MG DAY
     Dates: start: 20041018, end: 20041025
  2. TENEX [Concomitant]

REACTIONS (5)
  - DRUG INTERACTION [None]
  - FALL [None]
  - HEART RATE INCREASED [None]
  - ORTHOSTATIC HYPOTENSION [None]
  - SYNCOPE [None]
